FAERS Safety Report 21765890 (Version 1)
Quarter: 2022Q4

REPORT INFORMATION
  Report Type: Spontaneous
  Country: FR (occurrence: FR)
  Receive Date: 20221222
  Receipt Date: 20221222
  Transmission Date: 20230112
  Serious: Yes (Other)
  Sender: FDA-Public Use
  Company Number: None

PATIENT
  Age: 41 Year
  Sex: Female

DRUGS (1)
  1. TRAMADOL [Suspect]
     Active Substance: TRAMADOL
     Indication: Pain
     Dosage: 200 MG, 2 TO 3 TAB/DAY
     Route: 048
     Dates: start: 2019

REACTIONS (4)
  - Visual impairment [Recovered/Resolved]
  - Dysarthria [Recovered/Resolved]
  - Drug dependence [Not Recovered/Not Resolved]
  - Hallucination, auditory [Recovered/Resolved]

NARRATIVE: CASE EVENT DATE: 20220722
